FAERS Safety Report 4315067-9 (Version None)
Quarter: 2004Q1

REPORT INFORMATION
  Report Type: 
  Country: None (occurrence: None)
  Receive Date: 20040310
  Receipt Date: 20040225
  Transmission Date: 20041129
  Serious: Yes (Hospitalization, Other)
  Sender: FDA-Public Use
  Company Number: PHBS2004BR02743

PATIENT
  Age: 39 Year
  Sex: Female

DRUGS (5)
  1. CYCLOSPORINE [Suspect]
     Indication: BONE MARROW TRANSPLANT
     Dates: start: 20020101
  2. BUSULFAN [Suspect]
     Indication: BONE MARROW TRANSPLANT
  3. CYCLOPHOSPHAMIDE [Suspect]
     Indication: BONE MARROW TRANSPLANT
  4. METHOTREXATE [Suspect]
     Indication: BONE MARROW TRANSPLANT
  5. PREDNISONE [Suspect]
     Indication: BONE MARROW TRANSPLANT

REACTIONS (18)
  - ABSCESS [None]
  - CELLULITIS [None]
  - CHEILITIS [None]
  - ERYTHEMA [None]
  - FACE OEDEMA [None]
  - GENERALISED OEDEMA [None]
  - GRAFT VERSUS HOST DISEASE [None]
  - LICHENIFICATION [None]
  - MUCOSAL ULCERATION [None]
  - OEDEMA MUCOSAL [None]
  - PHOTOSENSITIVITY REACTION [None]
  - PYREXIA [None]
  - SCAB [None]
  - SOFT TISSUE INFECTION [None]
  - STOMATITIS [None]
  - TONGUE ULCERATION [None]
  - URINARY TRACT INFECTION [None]
  - VENOOCCLUSIVE LIVER DISEASE [None]
